FAERS Safety Report 7828535-X (Version None)
Quarter: 2011Q4

REPORT INFORMATION
  Report Type: 
  Country: None (occurrence: None)
  Receive Date: 20111020
  Receipt Date: 20110711
  Transmission Date: 20120403
  Serious: No
  Sender: FDA-Public Use
  Company Number: US-MYLANLABS-2011S1011599

PATIENT
  Sex: Male

DRUGS (10)
  1. CARBIDOPA AND LEVODOPA [Suspect]
     Route: 048
     Dates: start: 20070101
  2. VITAMIN D [Concomitant]
  3. LISINOPRIL [Concomitant]
  4. CARBIDOPA AND LEVODOPA [Suspect]
     Indication: PARKINSON'S DISEASE
     Route: 048
     Dates: start: 20070101
  5. MULTIVITAMIN [Concomitant]
  6. CARDURA [Concomitant]
     Indication: BLOOD PRESSURE INCREASED
  7. CO Q10 [Concomitant]
  8. NORVASC [Concomitant]
  9. VITAMIN E [Concomitant]
  10. KLONOPIN [Concomitant]

REACTIONS (9)
  - ASTHENIA [None]
  - EXCESSIVE EYE BLINKING [None]
  - DYSPHONIA [None]
  - DYSKINESIA [None]
  - TREMOR [None]
  - EYE DISORDER [None]
  - FEELING ABNORMAL [None]
  - MALAISE [None]
  - LACK OF SPONTANEOUS SPEECH [None]
